FAERS Safety Report 6286026-4 (Version None)
Quarter: 2009Q3

REPORT INFORMATION
  Report Type: 
  Country: None (occurrence: None)
  Receive Date: 20090728
  Receipt Date: 20090720
  Transmission Date: 20100115
  Serious: Yes (Hospitalization, Other)
  Sender: FDA-Public Use
  Company Number: US-AMGEN-QUU344177

PATIENT
  Sex: Female

DRUGS (1)
  1. ENBREL [Suspect]
     Indication: RHEUMATOID ARTHRITIS
     Route: 058
     Dates: start: 20060101

REACTIONS (5)
  - GESTATIONAL DIABETES [None]
  - PRE-ECLAMPSIA [None]
  - PREMATURE LABOUR [None]
  - VOMITING IN PREGNANCY [None]
  - WEIGHT LOSS POOR [None]
